FAERS Safety Report 4701755-9 (Version None)
Quarter: 2005Q2

REPORT INFORMATION
  Report Type: 
  Country: None (occurrence: None)
  Receive Date: 20050627
  Receipt Date: 20050615
  Transmission Date: 20051028
  Serious: Yes (Other)
  Sender: FDA-Public Use
  Company Number: 2005088789

PATIENT
  Age: 54 Year
  Sex: Female
  Weight: 149.687 kg

DRUGS (9)
  1. CELEBREX [Suspect]
     Indication: OSTEOARTHRITIS
     Dosage: ORAL
     Route: 048
     Dates: end: 20020101
  2. BEXTRA [Suspect]
     Indication: OSTEOARTHRITIS
     Dosage: 40 MG (20 MG, 2 IN 1 D), ORAL
     Route: 048
  3. PLAVIX [Concomitant]
  4. ZAROXOLYN [Concomitant]
  5. VITAMIN B12 (VITAMIN B12) [Concomitant]
  6. POTASSIUM (POTASSIUM) [Concomitant]
  7. HYDROCHLOROTHIAZIDE [Concomitant]
  8. SYNTHROID [Concomitant]
  9. EFFEXOR-XR (VENLAFAIXNE HYDROCHLORIDE) [Concomitant]

REACTIONS (3)
  - ATHEROSCLEROSIS [None]
  - DRUG INEFFECTIVE [None]
  - PAIN IN EXTREMITY [None]
